FAERS Safety Report 10246136 (Version 2)
Quarter: 2014Q3

REPORT INFORMATION
  Report Type: Spontaneous
  Country: PL (occurrence: PL)
  Receive Date: 20140619
  Receipt Date: 20140707
  Transmission Date: 20150326
  Serious: Yes (Hospitalization)
  Sender: FDA-Public Use
  Company Number: PL-JNJFOC-20140610530

PATIENT
  Age: 49 Year
  Sex: Female
  Weight: 49 kg

DRUGS (6)
  1. REMICADE [Suspect]
     Active Substance: INFLIXIMAB
     Indication: CROHN^S DISEASE
     Route: 042
     Dates: start: 20140611, end: 20140611
  2. SULFASALAZINE. [Concomitant]
     Active Substance: SULFASALAZINE
     Indication: CROHN^S DISEASE
     Dosage: FEW YEARS AGO
     Route: 065
  3. AZATHIOPRINE. [Concomitant]
     Active Substance: AZATHIOPRINE
     Indication: CROHN^S DISEASE
     Dosage: STARTED FEW YEARS AGO
     Route: 065
  4. METYPRED [Concomitant]
     Active Substance: METHYLPREDNISOLONE
     Indication: CROHN^S DISEASE
     Dosage: FROM 3 MONTHS PRIOR TO THE DATE OF THIS REPORT
     Route: 065
     Dates: start: 201403
  5. ACARD [Concomitant]
     Active Substance: ASPIRIN
     Indication: VENOUS THROMBOSIS
     Dosage: FEW MONTHS AGO
     Route: 065
  6. HYDROCORTISONE. [Concomitant]
     Active Substance: HYDROCORTISONE
     Route: 065
     Dates: start: 20140611

REACTIONS (6)
  - Malaise [Recovered/Resolved]
  - Asthenia [Recovered/Resolved]
  - Infusion related reaction [Recovered/Resolved]
  - Chills [Recovered/Resolved]
  - Tachycardia [Recovered/Resolved]
  - Dyspnoea [Recovered/Resolved]

NARRATIVE: CASE EVENT DATE: 20140611
